FAERS Safety Report 15782254 (Version 1)
Quarter: 2019Q1

REPORT INFORMATION
  Report Type: Spontaneous
  Country: PT (occurrence: PT)
  Receive Date: 20190102
  Receipt Date: 20190102
  Transmission Date: 20190417
  Serious: Yes (Other)
  Sender: FDA-Public Use
  Company Number: PT-MYLANLABS-2018M1097244

PATIENT
  Age: 80 Year
  Sex: Male

DRUGS (7)
  1. DABIGATRAN [Concomitant]
     Active Substance: DABIGATRAN
     Dosage: 110 MILLIGRAM, BID
  2. CARVEDILOL. [Concomitant]
     Active Substance: CARVEDILOL
     Dosage: 12.5 MILLIGRAM, BID
  3. ALLOPURINOL. [Suspect]
     Active Substance: ALLOPURINOL
     Indication: PRODUCT USED FOR UNKNOWN INDICATION
     Dosage: UNK
  4. INDAPAMIDE. [Concomitant]
     Active Substance: INDAPAMIDE
     Dosage: UNK
  5. ROSUVASTATIN. [Concomitant]
     Active Substance: ROSUVASTATIN
  6. IRBESARTAN. [Concomitant]
     Active Substance: IRBESARTAN
     Dosage: UNK
  7. BROMAZEPAM [Concomitant]
     Active Substance: BROMAZEPAM

REACTIONS (7)
  - Stevens-Johnson syndrome [Unknown]
  - Acute kidney injury [Unknown]
  - Ocular hyperaemia [Unknown]
  - Hyponatraemia [Unknown]
  - Anaemia [Unknown]
  - Hypotension [Unknown]
  - C-reactive protein increased [Unknown]
